FAERS Safety Report 8286368-7 (Version None)
Quarter: 2012Q2

REPORT INFORMATION
  Report Type: 
  Country: None (occurrence: None)
  Receive Date: 20120411
  Receipt Date: 20120330
  Transmission Date: 20120825
  Serious: Yes (Other)
  Sender: FDA-Public Use
  Company Number: DSA_56052_2012

PATIENT
  Sex: Male

DRUGS (3)
  1. FLAGYL [Suspect]
     Indication: GROIN ABSCESS
     Dosage: (500 MG QD ORAL)
     Route: 048
     Dates: start: 20120222, end: 20120311
  2. CEFTRIAXONE [Concomitant]
  3. CLINDAMYCIN [Suspect]
     Indication: GROIN ABSCESS
     Dosage: (900 MG TID INTRAVENOUS (NOT OTHERWISE SPECIFIED))
     Route: 042
     Dates: start: 20120222, end: 20120311

REACTIONS (4)
  - RASH MACULO-PAPULAR [None]
  - C-REACTIVE PROTEIN INCREASED [None]
  - RASH PRURITIC [None]
  - PYREXIA [None]
